FAERS Safety Report 5756611-4 (Version None)
Quarter: 2008Q2

REPORT INFORMATION
  Report Type: 
  Country: None (occurrence: None)
  Receive Date: 20080603
  Receipt Date: 20080529
  Transmission Date: 20081010
  Serious: Yes (Hospitalization)
  Sender: FDA-Public Use
  Company Number: US-BRISTOL-MYERS SQUIBB COMPANY-14189336

PATIENT
  Age: 75 Year
  Sex: Female

DRUGS (1)
  1. KENALOG [Suspect]
     Route: 014
     Dates: start: 20080403

REACTIONS (13)
  - ABDOMINAL DISTENSION [None]
  - ASTHENIA [None]
  - BLOOD CALCIUM INCREASED [None]
  - BLOOD GLUCOSE INCREASED [None]
  - CONSTIPATION [None]
  - DYSPNOEA [None]
  - GAIT DISTURBANCE [None]
  - HYPERHIDROSIS [None]
  - HYPOAESTHESIA [None]
  - KIDNEY INFECTION [None]
  - MUSCLE SPASMS [None]
  - NAUSEA [None]
  - SENSATION OF HEAVINESS [None]
